FAERS Safety Report 4684308-0 (Version None)
Quarter: 2005Q2

REPORT INFORMATION
  Report Type: 
  Country: None (occurrence: None)
  Receive Date: 20050607
  Receipt Date: 20050601
  Transmission Date: 20051028
  Serious: Yes (Other)
  Sender: FDA-Public Use
  Company Number: 2005UW08492

PATIENT
  Age: 59 Year
  Sex: Female
  Weight: 50.8 kg

DRUGS (5)
  1. IRESSA [Suspect]
     Indication: BREAST CANCER
     Route: 048
  2. SYNTHROID [Concomitant]
  3. NEXIUM [Concomitant]
     Route: 048
  4. CARAFATE [Concomitant]
  5. KYTRIL [Concomitant]

REACTIONS (1)
  - CATARACT [None]
